FAERS Safety Report 6086314-0 (Version None)
Quarter: 2009Q1

REPORT INFORMATION
  Report Type: 
  Country: None (occurrence: None)
  Receive Date: 20090220
  Receipt Date: 20090217
  Transmission Date: 20090719
  Serious: Yes (Death, Life-Threatening)
  Sender: FDA-Public Use
  Company Number: US-ROXANE LABORATORIES, INC.-2009-RO-00173RO

PATIENT
  Sex: Male

DRUGS (2)
  1. METHADONE HCL [Suspect]
     Indication: PAIN
  2. VICODIN [Suspect]
     Indication: PAIN

REACTIONS (3)
  - DEATH [None]
  - FEELING ABNORMAL [None]
  - OVERDOSE [None]
